FAERS Safety Report 8814664 (Version 1)
Quarter: 2012Q4

REPORT INFORMATION
  Report Type: Spontaneous
  Country: TR (occurrence: None)
  Receive Date: 20120926
  Receipt Date: 20120926
  Transmission Date: 20130627
  Serious: Yes (Hospitalization, Other)
  Sender: FDA-Public Use
  Company Number: 2012/140

PATIENT
  Age: 42 Year
  Sex: Female

DRUGS (2)
  1. CEFUROXIME AXETIL [Suspect]
     Indication: PROPHYLAXIS
     Route: 048
     Dates: start: 201006, end: 201006
  2. NAPROXEN SODIUM [Concomitant]

REACTIONS (6)
  - Haematuria [None]
  - Headache [None]
  - Nausea [None]
  - Pallor [None]
  - Anaemia [None]
  - Thrombotic thrombocytopenic purpura [None]
